FAERS Safety Report 5004433-4 (Version None)
Quarter: 2006Q2

REPORT INFORMATION
  Report Type: 
  Country: None (occurrence: None)
  Receive Date: 20060511
  Receipt Date: 20060301
  Transmission Date: 20061013
  Serious: Yes (Other)
  Sender: FDA-Public Use
  Company Number: 2006BH002703

PATIENT
  Age: 76 Year
  Sex: Male

DRUGS (4)
  1. BALANCED SALT SOLUTION [Suspect]
     Indication: SURGERY
  2. EPINEPHRINE [Concomitant]
  3. TEQUIN [Concomitant]
  4. KENALOG [Concomitant]

REACTIONS (2)
  - EYE INFECTION [None]
  - EYE IRRITATION [None]
